FAERS Safety Report 7009286-0 (Version None)
Quarter: 2010Q3

REPORT INFORMATION
  Report Type: 
  Country: None (occurrence: None)
  Receive Date: 20100923
  Receipt Date: 20100910
  Transmission Date: 20110219
  Serious: Yes (Hospitalization)
  Sender: FDA-Public Use
  Company Number: US-SANOFI-AVENTIS-2010SA056797

PATIENT
  Age: 55 Year
  Sex: Male
  Weight: 79 kg

DRUGS (4)
  1. ARAVA [Suspect]
     Indication: RHEUMATOID ARTHRITIS
     Route: 048
     Dates: start: 20010101, end: 20020101
  2. VERELAN [Concomitant]
  3. CLARITIN [Concomitant]
  4. LEVOFLOXACIN [Concomitant]
     Dates: start: 20020427, end: 20020503

REACTIONS (3)
  - LIVER FUNCTION TEST ABNORMAL [None]
  - PNEUMONIA [None]
  - SEPSIS [None]
